FAERS Safety Report 6528578-2 (Version None)
Quarter: 2009Q4

REPORT INFORMATION
  Report Type: 
  Country: None (occurrence: None)
  Receive Date: 20091222
  Receipt Date: 20090829
  Transmission Date: 20100525
  Serious: No
  Sender: FDA-Public Use
  Company Number: ALL1-2009-02515

PATIENT
  Age: 37 Year
  Sex: Female
  Weight: 70.3 kg

DRUGS (4)
  1. VYVANSE [Suspect]
     Indication: ATTENTION DEFICIT/HYPERACTIVITY DISORDER
     Dosage: 30 MG, 1X/DAY,QD, ORAL
     Route: 048
     Dates: start: 20080901, end: 20090101
  2. LAMICTAL [Concomitant]
  3. ABILIFY (ARIPIPRAZOLE) CAPSULE [Concomitant]
  4. BUPROPION HCL [Concomitant]

REACTIONS (3)
  - DRUG EXPOSURE DURING PREGNANCY [None]
  - DRY EYE [None]
  - OCULAR HYPERAEMIA [None]
